FAERS Safety Report 4289707-7 (Version None)
Quarter: 2004Q1

REPORT INFORMATION
  Report Type: 
  Country: None (occurrence: None)
  Receive Date: 20040206
  Receipt Date: 20030107
  Transmission Date: 20041129
  Serious: Yes (Hospitalization)
  Sender: FDA-Public Use
  Company Number: 8-96340-002P

PATIENT
  Age: 22 Year
  Sex: Female
  Weight: 54.48 kg

DRUGS (3)
  1. NORPLANT SYSTEM [Suspect]
     Indication: CONTRACEPTION
     Dosage: 6 CAPSULES, SUBCUTANEOUS
     Route: 058
     Dates: start: 19940101, end: 20020301
  2. COCAINE (COCAINE, ) [Suspect]
  3. UNSPECIFIED ANTIBIOTIC (UNSPECIFIED ANTIBIOTIC) [Concomitant]

REACTIONS (1)
  - CEREBROVASCULAR ACCIDENT [None]
